FAERS Safety Report 21538348 (Version 1)
Quarter: 2022Q4

REPORT INFORMATION
  Report Type: Spontaneous
  Country: FR (occurrence: FR)
  Receive Date: 20221102
  Receipt Date: 20221102
  Transmission Date: 20230113
  Serious: Yes (Death)
  Sender: FDA-Public Use
  Company Number: FR-AFSSAPS-AVCN20220850

PATIENT
  Age: 23 Year
  Sex: Male

DRUGS (6)
  1. MORPHINE [Suspect]
     Active Substance: MORPHINE
     Indication: Product used for unknown indication
     Dosage: UNK
     Route: 065
     Dates: end: 202207
  2. NOSCAPINE [Suspect]
     Active Substance: NOSCAPINE
     Indication: Product used for unknown indication
     Dosage: UNK
     Route: 065
     Dates: end: 202207
  3. 11-NOR-9-CARBOXY-.DELTA-9-TETRAHYDROCANNABINOL [Suspect]
     Active Substance: 11-NOR-9-CARBOXY-.DELTA-9-TETRAHYDROCANNABINOL
     Indication: Product used for unknown indication
     Dosage: UNK
     Route: 065
     Dates: end: 202207
  4. CODEINE [Suspect]
     Active Substance: CODEINE
     Indication: Product used for unknown indication
     Dosage: UNK
     Route: 065
     Dates: end: 202207
  5. 6-ACETYLMORPHINE [Suspect]
     Active Substance: 6-ACETYLMORPHINE
     Indication: Product used for unknown indication
     Dosage: UNK
     Route: 065
     Dates: end: 202207
  6. ALCOHOL [Suspect]
     Active Substance: ALCOHOL
     Indication: Product used for unknown indication
     Dosage: UNK
     Route: 065
     Dates: end: 202207

REACTIONS (2)
  - Asphyxia [Fatal]
  - Substance abuse [Fatal]

NARRATIVE: CASE EVENT DATE: 20220701
